FAERS Safety Report 6143804-X (Version None)
Quarter: 2009Q2

REPORT INFORMATION
  Report Type: 
  Country: None (occurrence: None)
  Receive Date: 20090403
  Receipt Date: 20090331
  Transmission Date: 20091009
  Serious: Yes (Death)
  Sender: FDA-Public Use
  Company Number: PHHY2008MX06642

PATIENT
  Sex: Male

DRUGS (4)
  1. TRILEPTAL [Suspect]
     Indication: EPILEPSY
     Dosage: 6 TABLETS/DAY (600 MG)
     Route: 048
     Dates: start: 19900101, end: 20080401
  2. ATEMPERATOR [Concomitant]
     Dosage: 6 TAB/DAY
     Route: 048
  3. FRISIUM [Concomitant]
     Dosage: 6 TAB/DAY
     Route: 048
  4. ACETAZOLAMIDE [Concomitant]
     Dosage: UNK

REACTIONS (6)
  - BRAIN INJURY [None]
  - CONVULSION [None]
  - ENCEPHALITIS VIRAL [None]
  - INJURY [None]
  - RESPIRATORY FAILURE [None]
  - SKULL FRACTURED BASE [None]
